FAERS Safety Report 7884498 (Version 3)
Quarter: 2012Q4

REPORT INFORMATION
  Report Type: 
  Country: NO (occurrence: NO)
  Receive Date: 20110405
  Receipt Date: 20121024
  Transmission Date: 20130627
  Serious: Yes (Hospitalization, Other)
  Sender: FDA-Public Use
  Company Number: NO-AMGEN-NORSP2011008560

PATIENT
  Age: 60 Year
  Sex: Female

DRUGS (18)
  1. ENBREL [Suspect]
     Indication: RHEUMATOID ARTHRITIS
     Dosage: UNK
     Dates: start: 20061026, end: 200810
  2. METHOTREXATE SODIUM [Concomitant]
     Indication: RHEUMATOID ARTHRITIS
     Dosage: 10 mg, weekly
     Dates: start: 1999
  3. METHOTREXATE SODIUM [Concomitant]
     Indication: PSORIATIC ARTHROPATHY
  4. METHOTREXATE SODIUM [Concomitant]
     Indication: PSORIATIC ARTHROPATHY
  5. METFORMIN HYDROCHLORIDE [Concomitant]
     Dosage: 500 mg, 3x/day
  6. TRIOBE                             /01079901/ [Concomitant]
     Dosage: 1 tablet x 1
  7. PREDNISOLONE [Concomitant]
     Dosage: 2.5 mg x 1, UNK
  8. PREDNISOLONE [Concomitant]
     Dosage: 2,5 mg x 1
  9. SIMVASTATIN [Concomitant]
     Dosage: 20 mg at night, UNK
  10. SIMVASTATIN [Concomitant]
     Dosage: 20 mg at night
  11. SINEMET [Concomitant]
     Dosage: 25/100 1 tablet x 2 and increasing 1 x3 and then 1 x 4
  12. ALENDRONATE SODIUM [Concomitant]
     Dosage: 70 mg every monday, UNK
  13. ALENDRONATE SODIUM [Concomitant]
     Dosage: 70 mg every monday
  14. CALCIGRAN FORTE [Concomitant]
     Dosage: 1 tablet x 2
  15. TENORMIN [Concomitant]
     Dosage: 25 mg, 2x/day
  16. DAKTAR                             /00310802/ [Concomitant]
  17. STILNOCT [Concomitant]
  18. PARALGIN FORTE                     /00116401/ [Concomitant]

REACTIONS (7)
  - Nervous system disorder [Not Recovered/Not Resolved]
  - Encephalopathy [Not Recovered/Not Resolved]
  - Progressive supranuclear palsy [Not Recovered/Not Resolved]
  - Circulatory collapse [Not Recovered/Not Resolved]
  - Mobility decreased [Not Recovered/Not Resolved]
  - Pain in extremity [Not Recovered/Not Resolved]
  - Poor quality sleep [Not Recovered/Not Resolved]
